FAERS Safety Report 6788085-9 (Version None)
Quarter: 2010Q2

REPORT INFORMATION
  Report Type: 
  Country: None (occurrence: None)
  Receive Date: 20100621
  Receipt Date: 20100609
  Transmission Date: 20101027
  Serious: Yes (Disabling, Other)
  Sender: FDA-Public Use
  Company Number: 233310K09USA

PATIENT
  Age: 60 Year
  Sex: Female

DRUGS (3)
  1. REBIF [Suspect]
     Indication: MULTIPLE SCLEROSIS
     Dosage: 44MCG, 3 IN 1WK, SUBCUTANEOUS
     Route: 058
     Dates: start: 20040614
  2. MIRALAX [Concomitant]
  3. UNSPECIFIED STOOL SOFTNER (DOCUSATE SODIUM) [Concomitant]

REACTIONS (4)
  - DEPRESSION [None]
  - HAEMORRHOID OPERATION [None]
  - PROCTALGIA [None]
  - RECTAL FISSURE [None]
